FAERS Safety Report 9163696 (Version 1)
Quarter: 2013Q1

REPORT INFORMATION
  Report Type: Spontaneous
  Country: US (occurrence: US)
  Receive Date: 20130314
  Receipt Date: 20130314
  Transmission Date: 20140127
  Serious: Yes (Other)
  Sender: FDA-Public Use
  Company Number: US-ELI_LILLY_AND_COMPANY-US201303003222

PATIENT
  Sex: Male

DRUGS (2)
  1. ADCIRCA [Suspect]
     Indication: PULMONARY HYPERTENSION
     Dosage: 40 MG, QD
     Dates: start: 20120628
  2. TRACLEER [Concomitant]

REACTIONS (3)
  - Cardiac failure congestive [Unknown]
  - Local swelling [Unknown]
  - Back pain [Unknown]
